FAERS Safety Report 6261946-5 (Version None)
Quarter: 2009Q3

REPORT INFORMATION
  Report Type: 
  Country: None (occurrence: None)
  Receive Date: 20090709
  Receipt Date: 20090304
  Transmission Date: 20100115
  Serious: Yes (Life-Threatening, Hospitalization)
  Sender: FDA-Public Use
  Company Number: B0582828A

PATIENT
  Age: 77 Year
  Sex: Male
  Weight: 75 kg

DRUGS (5)
  1. OMACOR [Suspect]
     Dosage: 1000MG PER DAY
     Route: 048
     Dates: start: 20050622
  2. BETA BLOCKERS [Concomitant]
  3. ASPIRIN [Concomitant]
  4. CLOPIDOGREL [Concomitant]
  5. DIURETICS [Concomitant]

REACTIONS (3)
  - ACUTE MYOCARDIAL INFARCTION [None]
  - CHEST PAIN [None]
  - PALPITATIONS [None]
